FAERS Safety Report 17863442 (Version 1)
Quarter: 2020Q2

REPORT INFORMATION
  Report Type: Spontaneous
  Country: SE (occurrence: SE)
  Receive Date: 20200605
  Receipt Date: 20200605
  Transmission Date: 20200714
  Serious: Yes (Life-Threatening, Hospitalization, Congenital Anomaly)
  Sender: FDA-Public Use
  Company Number: SE-SUN PHARMACEUTICAL INDUSTRIES LTD-2020RR-249241

PATIENT
  Sex: Female

DRUGS (1)
  1. SERTRALINE [Suspect]
     Active Substance: SERTRALINE HYDROCHLORIDE
     Indication: PRODUCT USED FOR UNKNOWN INDICATION
     Dosage: 200 MG/DAG FRAM TILL VECKA 15/16. SEDAN NEDTRAPPNING TILL 100 MG DAGLIGEN FRAM TILL PARTUS. (1)
     Route: 064

REACTIONS (1)
  - Shone complex [Recovered/Resolved with Sequelae]

NARRATIVE: CASE EVENT DATE: 201909
